FAERS Safety Report 4541347-8 (Version None)
Quarter: 2004Q4

REPORT INFORMATION
  Report Type: 
  Country: None (occurrence: None)
  Receive Date: 20041227
  Receipt Date: 20041007
  Transmission Date: 20050328
  Serious: Yes (Hospitalization)
  Sender: FDA-Public Use
  Company Number: ACO_0008_2004

PATIENT
  Sex: Female

DRUGS (1)
  1. TERNELIN [Suspect]
     Dates: start: 20040916, end: 20040916

REACTIONS (2)
  - OVERDOSE [None]
  - SOMNOLENCE [None]
